FAERS Safety Report 9980874 (Version 1)
Quarter: 2014Q1

REPORT INFORMATION
  Report Type: Spontaneous
  Country: US (occurrence: None)
  Receive Date: 20140306
  Receipt Date: 20140306
  Transmission Date: 20141002
  Serious: No
  Sender: FDA-Public Use
  Company Number: None

PATIENT
  Age: 18 Year
  Sex: Female
  Weight: 46.72 kg

DRUGS (1)
  1. ESCITALOPRAM [Suspect]
     Indication: DEPRESSION
     Dosage: 1 PILL ONCE DAILY TAKEN BY MOUTH
     Route: 048
     Dates: start: 20140227, end: 20140303

REACTIONS (9)
  - Product substitution issue [None]
  - Abdominal pain [None]
  - Abdominal distension [None]
  - Constipation [None]
  - Nausea [None]
  - Dyspepsia [None]
  - Gastrooesophageal reflux disease [None]
  - Anxiety [None]
  - Educational problem [None]
